FAERS Safety Report 18846278 (Version 4)
Quarter: 2021Q2

REPORT INFORMATION
  Report Type: Spontaneous
  Country: US (occurrence: US)
  Receive Date: 20210204
  Receipt Date: 20210502
  Transmission Date: 20210717
  Serious: Yes (Death, Other)
  Sender: FDA-Public Use
  Company Number: US-ROCHE-2763127

PATIENT
  Age: 84 Year
  Sex: Female
  Weight: 49.94 kg

DRUGS (1)
  1. ERIVEDGE [Suspect]
     Active Substance: VISMODEGIB
     Indication: BASAL CELL CARCINOMA
     Route: 048
     Dates: start: 201706, end: 20210120

REACTIONS (4)
  - Cerebrovascular accident [Fatal]
  - Alopecia [Not Recovered/Not Resolved]
  - Squamous cell carcinoma of skin [Recovered/Resolved]
  - Atrial fibrillation [Fatal]

NARRATIVE: CASE EVENT DATE: 201906
